FAERS Safety Report 9469908 (Version 1)
Quarter: 2013Q3

REPORT INFORMATION
  Report Type: Spontaneous
  Country: US (occurrence: None)
  Receive Date: 20130820
  Receipt Date: 20130820
  Transmission Date: 20140515
  Serious: No
  Sender: FDA-Public Use
  Company Number: None

PATIENT
  Age: 55 Year
  Sex: Female

DRUGS (1)
  1. SPRYCEL [Suspect]
     Dosage: 100MG  DAILY  PO
     Route: 048
     Dates: start: 20130523

REACTIONS (3)
  - Oedema [None]
  - Insomnia [None]
  - Alopecia [None]
